FAERS Safety Report 23992093 (Version 2)
Quarter: 2024Q3

REPORT INFORMATION
  Report Type: Spontaneous
  Country: UY (occurrence: UY)
  Receive Date: 20240620
  Receipt Date: 20240710
  Transmission Date: 20241016
  Serious: Yes (Disabling)
  Sender: ROCHE
  Company Number: UY-ROCHE-3580265

PATIENT
  Sex: Female

DRUGS (1)
  1. OCREVUS [Suspect]
     Active Substance: OCRELIZUMAB
     Indication: Product used for unknown indication
     Dosage: LAST DOSE OF OCRELIZUMAB ON 18-OCT-2023
     Route: 065
     Dates: start: 202102

REACTIONS (1)
  - Disease progression [Unknown]
